FAERS Safety Report 24343151 (Version 1)
Quarter: 2024Q3

REPORT INFORMATION
  Report Type: Spontaneous
  Country: US (occurrence: None)
  Receive Date: 20240919
  Receipt Date: 20240919
  Transmission Date: 20241017
  Serious: No
  Sender: Public
  Company Number: None

PATIENT
  Age: 26 Year
  Sex: Female
  Weight: 59.85 kg

DRUGS (1)
  1. ADBRY [Suspect]
     Active Substance: TRALOKINUMAB-LDRM
     Indication: Dermatitis atopic
     Dosage: 150 MG ONCE EVERY 14 DAYS SUBCUTANEOUS
     Route: 058

REACTIONS (5)
  - Therapeutic product effect decreased [None]
  - Dermatitis atopic [None]
  - Eye pain [None]
  - Keratitis [None]
  - Adverse drug reaction [None]

NARRATIVE: CASE EVENT DATE: 20240919
